FAERS Safety Report 8430505-8 (Version None)
Quarter: 2012Q2

REPORT INFORMATION
  Report Type: 
  Country: None (occurrence: None)
  Receive Date: 20120606
  Receipt Date: 20120606
  Transmission Date: 20120825
  Serious: Yes (Hospitalization)
  Sender: FDA-Public Use
  Company Number: None

PATIENT
  Age: 79 Year
  Sex: Male
  Weight: 91.6 kg

DRUGS (1)
  1. SIMVASTATIN [Suspect]
     Dosage: 80 MG HS PO
     Route: 048
     Dates: start: 20071227, end: 20120123

REACTIONS (5)
  - ASTHENIA [None]
  - RENAL FAILURE ACUTE [None]
  - HEPATIC ENZYME INCREASED [None]
  - RHABDOMYOLYSIS [None]
  - MYALGIA [None]
